FAERS Safety Report 19964000 (Version 1)
Quarter: 2021Q4

REPORT INFORMATION
  Report Type: Spontaneous
  Country: US (occurrence: US)
  Receive Date: 20211018
  Receipt Date: 20211018
  Transmission Date: 20220303
  Serious: Yes (Other)
  Sender: FDA-Public Use
  Company Number: None

PATIENT
  Age: 36 Year
  Sex: Female
  Weight: 89.4 kg

DRUGS (1)
  1. REGEN-COV [Suspect]
     Active Substance: CASIRIVIMAB\IMDEVIMAB
     Indication: COVID-19
     Dosage: ?          OTHER FREQUENCY:ONCE;
     Route: 041
     Dates: start: 20211012, end: 20211012

REACTIONS (5)
  - Maternal exposure during pregnancy [None]
  - Erythema [None]
  - Palpitations [None]
  - Dyspnoea [None]
  - Foetal hypokinesia [None]

NARRATIVE: CASE EVENT DATE: 20211012
